FAERS Safety Report 4694383-5 (Version None)
Quarter: 2005Q2

REPORT INFORMATION
  Report Type: 
  Country: None (occurrence: None)
  Receive Date: 20050620
  Receipt Date: 20050614
  Transmission Date: 20051028
  Serious: Yes (Life-Threatening, Hospitalization)
  Sender: FDA-Public Use
  Company Number: PHHO2005GB09455

PATIENT
  Age: 69 Year
  Sex: Male

DRUGS (1)
  1. NEORAL [Suspect]
     Indication: RENAL TRANSPLANT
     Dosage: 74 MG, BID
     Route: 048
     Dates: start: 20040224

REACTIONS (4)
  - DYSPNOEA EXERTIONAL [None]
  - LUNG CONSOLIDATION [None]
  - PULMONARY EMBOLISM [None]
  - THROMBOSIS [None]
